FAERS Safety Report 7007077-8 (Version None)
Quarter: 2010Q3

REPORT INFORMATION
  Report Type: 
  Country: None (occurrence: None)
  Receive Date: 20100920
  Receipt Date: 20100903
  Transmission Date: 20110219
  Serious: Yes (Disabling, Other)
  Sender: FDA-Public Use
  Company Number: ACO_02112_2010

PATIENT
  Sex: Female
  Weight: 47.6277 kg

DRUGS (2)
  1. AMPYRA [Suspect]
     Indication: GAIT DISTURBANCE
     Dosage: 10 MG, DF ORAL, 10 MG BID ORAL
     Route: 048
     Dates: start: 20100901, end: 20100901
  2. AMPYRA [Suspect]
     Indication: GAIT DISTURBANCE
     Dosage: 10 MG, DF ORAL, 10 MG BID ORAL
     Route: 048
     Dates: start: 20100908, end: 20100908

REACTIONS (10)
  - BLOOD LACTIC ACID INCREASED [None]
  - DIZZINESS [None]
  - FEELING COLD [None]
  - GAIT DISTURBANCE [None]
  - MUSCLE TIGHTNESS [None]
  - MUSCULAR WEAKNESS [None]
  - MYALGIA [None]
  - PARAESTHESIA [None]
  - PRURITUS [None]
  - SKIN BURNING SENSATION [None]
